FAERS Safety Report 5406726-5 (Version None)
Quarter: 2007Q3

REPORT INFORMATION
  Report Type: 
  Country: None (occurrence: None)
  Receive Date: 20070802
  Receipt Date: 20070726
  Transmission Date: 20080115
  Serious: Yes (Other)
  Sender: FDA-Public Use
  Company Number: UKP06000208

PATIENT
  Age: 80 Year
  Sex: Female

DRUGS (7)
  1. ACTONEL [Suspect]
     Indication: ARTHRITIS
     Dosage: 35MG, 1/WEEK, ORAL
     Route: 048
  2. PREDNISOLONE [Suspect]
     Indication: ARTHRITIS
     Dosage: 15 MG, 1/DAY, ORAL
     Dates: start: 20050819, end: 20050914
  3. PREDNISOLONE [Suspect]
     Indication: ARTHRITIS
     Dosage: 15 MG, 1/DAY, ORAL
     Dates: start: 20050501
  4. GLUCOSAMINE (GLUCOSAMINE) [Concomitant]
  5. LANSOPRAZOLE [Concomitant]
  6. NAPROXEN [Concomitant]
  7. LEVOTHYROXINE SODIUM [Concomitant]

REACTIONS (6)
  - CRYING [None]
  - GAIT DISTURBANCE [None]
  - IMPAIRED DRIVING ABILITY [None]
  - MUSCLE SPASMS [None]
  - MYALGIA [None]
  - PAIN IN EXTREMITY [None]
